FAERS Safety Report 9109942 (Version 3)
Quarter: 2013Q2

REPORT INFORMATION
  Report Type: Report from Study
  Country: UA (occurrence: UA)
  Receive Date: 20130222
  Receipt Date: 20130603
  Transmission Date: 20140414
  Serious: Yes (Hospitalization)
  Sender: FDA-Public Use
  Company Number: UA-PFIZER INC-2013058317

PATIENT
  Age: 59 Year
  Sex: Female
  Weight: 57 kg

DRUGS (5)
  1. TOFACITINIB CITRATE [Suspect]
     Indication: RHEUMATOID ARTHRITIS
     Dosage: 10 MG, 2X/DAY
     Route: 048
     Dates: start: 20120821
  2. METHYLPREDNISOLONE [Concomitant]
     Indication: RHEUMATOID ARTHRITIS
     Dosage: 4 MG, 4X/DAY
     Route: 048
     Dates: start: 2002
  3. ROFECOXIB [Concomitant]
     Indication: RHEUMATOID ARTHRITIS
     Dosage: 25 MG, 4X/DAY
     Route: 048
     Dates: start: 20101107
  4. CALCIUM D3 [Concomitant]
     Indication: OSTEOPOROSIS
     Dosage: UNK
     Route: 048
     Dates: start: 201006
  5. HYDROCHLOROTHIAZIDE [Concomitant]
     Indication: HYPERTENSION
     Dosage: TABLET, 4X/DAY
     Route: 048
     Dates: start: 200905, end: 20130119

REACTIONS (2)
  - Hypertensive crisis [Recovered/Resolved]
  - Epistaxis [Recovered/Resolved]
